FAERS Safety Report 6166365-8 (Version None)
Quarter: 2009Q2

REPORT INFORMATION
  Report Type: 
  Country: None (occurrence: None)
  Receive Date: 20090424
  Receipt Date: 20080808
  Transmission Date: 20091009
  Serious: No
  Sender: FDA-Public Use
  Company Number: A0741812A

PATIENT
  Age: 56 Year
  Sex: Female

DRUGS (5)
  1. DEXEDRINE [Suspect]
     Indication: ATTENTION DEFICIT/HYPERACTIVITY DISORDER
     Dosage: 10MG VARIABLE DOSE
     Route: 048
     Dates: start: 19700101
  2. POTASSIUM CHLORIDE [Concomitant]
  3. HYDROCHLOROTHIAZIDE [Concomitant]
  4. METOPROLOL SUCCINATE [Concomitant]
  5. UNKNOWN MEDICATION [Concomitant]

REACTIONS (1)
  - DRUG INEFFECTIVE [None]
